FAERS Safety Report 9762491 (Version 1)
Quarter: 2013Q4

REPORT INFORMATION
  Report Type: Spontaneous
  Country: IT (occurrence: None)
  Receive Date: 20131213
  Receipt Date: 20131213
  Transmission Date: 20140711
  Serious: Yes (Hospitalization)
  Sender: FDA-Public Use
  Company Number: 2060219

PATIENT
  Age: 75 Year
  Sex: Male

DRUGS (1)
  1. DOCETAXEL [Suspect]
     Dosage: CYCLICAL, (NOT OTHERWISE SPECIFIED)
     Route: 042
     Dates: start: 20131113, end: 20131113

REACTIONS (1)
  - Laryngospasm [None]
